FAERS Safety Report 17548946 (Version 1)
Quarter: 2020Q1

REPORT INFORMATION
  Report Type: Spontaneous
  Country: US (occurrence: US)
  Receive Date: 20200317
  Receipt Date: 20200317
  Transmission Date: 20200409
  Serious: No
  Sender: FDA-Public Use
  Company Number: US-ASTRAZENECA-2020SE34478

PATIENT
  Sex: Female

DRUGS (2)
  1. QUITAPENE FUMARATE [Suspect]
     Active Substance: QUETIAPINE FUMARATE
     Dosage: UNKNOWN
     Route: 048
  2. EFFEXOR XR [Suspect]
     Active Substance: VENLAFAXINE HYDROCHLORIDE
     Dosage: 150.0MG UNKNOWN
     Route: 065

REACTIONS (3)
  - Sleep apnoea syndrome [Unknown]
  - Diabetes mellitus [Unknown]
  - Drug intolerance [Unknown]
